FAERS Safety Report 16476585 (Version 2)
Quarter: 2021Q4

REPORT INFORMATION
  Report Type: Spontaneous
  Country: CA (occurrence: CA)
  Receive Date: 20190626
  Receipt Date: 20211110
  Transmission Date: 20220303
  Serious: Yes (Other)
  Sender: FDA-Public Use
  Company Number: CA-AUROBINDO-AUR-APL-2019-035401

PATIENT
  Age: 40 Year
  Sex: Male

DRUGS (1)
  1. OLANZAPINE [Suspect]
     Active Substance: OLANZAPINE
     Indication: Anxiety
     Dosage: 5.0 MILLIGRAM, TWO TIMES A DAY
     Route: 048

REACTIONS (3)
  - Drug intolerance [Unknown]
  - Loss of consciousness [Unknown]
  - Muscle twitching [Unknown]
